FAERS Safety Report 6497316-4 (Version None)
Quarter: 2009Q4

REPORT INFORMATION
  Report Type: 
  Country: None (occurrence: None)
  Receive Date: 20091211
  Receipt Date: 20090908
  Transmission Date: 20100525
  Serious: Yes (Death)
  Sender: FDA-Public Use
  Company Number: 1000010615

PATIENT

DRUGS (1)
  1. MEMANTINE HCL [Suspect]

REACTIONS (2)
  - COMPLETED SUICIDE [None]
  - DISINHIBITION [None]
